FAERS Safety Report 6541450-7 (Version None)
Quarter: 2010Q1

REPORT INFORMATION
  Report Type: 
  Country: None (occurrence: None)
  Receive Date: 20100118
  Receipt Date: 20100113
  Transmission Date: 20100710
  Serious: Yes (Death, Hospitalization)
  Sender: FDA-Public Use
  Company Number: PHEH2009US18133

PATIENT
  Sex: Male

DRUGS (1)
  1. AFINITOR [Suspect]
     Indication: RENAL CELL CARCINOMA
     Dosage: 10 MG, QD
     Route: 048
     Dates: start: 20091215, end: 20100106

REACTIONS (4)
  - BLOOD COUNT ABNORMAL [None]
  - DEATH [None]
  - DYSPNOEA [None]
  - RED BLOOD CELL COUNT DECREASED [None]
